FAERS Safety Report 10743255 (Version 1)
Quarter: 2015Q1

REPORT INFORMATION
  Report Type: Spontaneous
  Country: US (occurrence: US)
  Receive Date: 20150127
  Receipt Date: 20150127
  Transmission Date: 20150721
  Serious: Yes (Other)
  Sender: FDA-Public Use
  Company Number: US-B.I. PHARMACEUTICALS,INC./RIDGEFIELD-2015-BI-03552BP

PATIENT
  Age: 71 Year
  Sex: Female

DRUGS (4)
  1. VOLTAREN [Suspect]
     Active Substance: DICLOFENAC SODIUM
     Dosage: DOSE PER APPLICATION AND DAILY DOSE: LESS THAN 4G
     Route: 061
     Dates: start: 20141218, end: 20141218
  2. VOLTAREN [Suspect]
     Active Substance: DICLOFENAC SODIUM
     Indication: ARTHRITIS
     Dosage: DOSE PER APPLICATION AND DAILY DOSE: 2 TO 4G
     Route: 061
     Dates: end: 20141217
  3. MOBIC [Suspect]
     Active Substance: MELOXICAM
     Indication: PRODUCT USED FOR UNKNOWN INDICATION
     Route: 065
  4. VOLTAREN [Suspect]
     Active Substance: DICLOFENAC SODIUM
     Dosage: 4 G
     Route: 061
     Dates: start: 20141217, end: 20141217

REACTIONS (9)
  - Skin burning sensation [Recovered/Resolved]
  - Burning sensation [Recovered/Resolved]
  - Irritability [Unknown]
  - Throat tightness [Recovered/Resolved]
  - Glossodynia [Unknown]
  - Application site pain [Not Recovered/Not Resolved]
  - Incorrect dose administered [Unknown]
  - Oral discomfort [Unknown]
  - Pain [Unknown]

NARRATIVE: CASE EVENT DATE: 2014
